FAERS Safety Report 17823274 (Version 2)
Quarter: 2020Q4

REPORT INFORMATION
  Report Type: Report from Study
  Country: None (occurrence: US)
  Receive Date: 20200526
  Receipt Date: 20201010
  Transmission Date: 20210113
  Serious: Yes (Hospitalization, Other)
  Sender: FDA-Public Use
  Company Number: US-ABBVIE-20K-163-3413721-00

PATIENT
  Age: 60 Year
  Sex: Female

DRUGS (1)
  1. HUMIRA [Suspect]
     Active Substance: ADALIMUMAB
     Indication: CROHN^S DISEASE
     Route: 058

REACTIONS (6)
  - Central venous catheterisation [Recovered/Resolved]
  - Vein disorder [Not Recovered/Not Resolved]
  - Vaginal discharge [Recovered/Resolved]
  - Surgery [Unknown]
  - Stoma site haemorrhage [Recovered/Resolved]
  - Pelvic prolapse [Not Recovered/Not Resolved]

NARRATIVE: CASE EVENT DATE: 202008
